FAERS Safety Report 5045684-2 (Version None)
Quarter: 2006Q3

REPORT INFORMATION
  Report Type: 
  Country: None (occurrence: None)
  Receive Date: 20060707
  Receipt Date: 20060515
  Transmission Date: 20061208
  Serious: Yes (Hospitalization)
  Sender: FDA-Public Use
  Company Number: BE-MERCK-0605BEL00015

PATIENT
  Age: 60 Year
  Sex: Male

DRUGS (7)
  1. QUINAPRIL HYDROCHLORIDE [Concomitant]
     Indication: HYPERTENSION
     Route: 048
  2. ZOCOR [Suspect]
     Indication: HYPERCHOLESTEROLAEMIA
     Route: 048
     Dates: start: 20030701
  3. GLYBURIDE AND METFORMIN HYDROCHLORIDE [Concomitant]
     Indication: DIABETES MELLITUS
     Route: 048
  4. CLOPIDOGREL BISULFATE [Concomitant]
     Indication: ANGIOPATHY
     Route: 048
  5. INSULIN HUMAN ZINC, EXTENDED [Concomitant]
     Indication: DIABETES MELLITUS
     Route: 058
     Dates: start: 20060123
  6. VENLAFAXINE HYDROCHLORIDE [Concomitant]
     Indication: DEPRESSION
     Route: 048
  7. AMLODIPINE BESYLATE [Concomitant]
     Indication: HYPERTENSION
     Route: 048

REACTIONS (1)
  - ARTERIOSCLEROSIS CORONARY ARTERY [None]
